FAERS Safety Report 9173880 (Version 1)
Quarter: 2013Q1

REPORT INFORMATION
  Report Type: Spontaneous
  Country: GB (occurrence: None)
  Receive Date: 20130315
  Receipt Date: 20130315
  Transmission Date: 20140127
  Serious: Yes (Life-Threatening)
  Sender: FDA-Public Use
  Company Number: 2013-03131

PATIENT
  Age: 77 Year
  Sex: Male
  Weight: 106 kg

DRUGS (6)
  1. FINASTERIDE (UNKNOWN) (FINASTERIDE) UNK, UNKUNK [Suspect]
     Indication: BENIGN PROSTATIC HYPERPLASIA
     Route: 048
     Dates: start: 20120618, end: 20120812
  2. TAMSULOSIN (TAMSULOSIN) [Concomitant]
  3. LISINOPRIL (LISINOPRIL) [Concomitant]
  4. PIOGLITAZONE (PIOGLITAZONE) [Concomitant]
  5. METFORMIN (METFORMIN) [Concomitant]
  6. ATENOLOL (ATENOLOL) [Concomitant]

REACTIONS (2)
  - Suicidal ideation [None]
  - Emotional poverty [None]
